FAERS Safety Report 7693191-0 (Version None)
Quarter: 2011Q3

REPORT INFORMATION
  Report Type: 
  Country: None (occurrence: None)
  Receive Date: 20110819
  Receipt Date: 20110809
  Transmission Date: 20111222
  Serious: Yes (Hospitalization)
  Sender: FDA-Public Use
  Company Number: US-BAYER-201040354NA

PATIENT
  Age: 39 Year
  Sex: Female
  Weight: 65.306 kg

DRUGS (5)
  1. YAZ [Suspect]
     Indication: ACNE
  2. CYMBALTA [Concomitant]
     Dosage: 30 MG, UNK
     Route: 048
  3. YAZ [Suspect]
     Indication: PREMENSTRUAL SYNDROME
  4. YAZ [Suspect]
     Indication: CONTRACEPTION
     Dosage: UNK
     Dates: start: 20070101, end: 20080801
  5. ZELNORM [Concomitant]
     Dosage: 6 MG, UNK
     Route: 048
     Dates: start: 20080518

REACTIONS (2)
  - QUALITY OF LIFE DECREASED [None]
  - PULMONARY EMBOLISM [None]
